FAERS Safety Report 9259630 (Version 1)
Quarter: 2013Q2

REPORT INFORMATION
  Report Type: Spontaneous
  Country: CA (occurrence: CA)
  Receive Date: 20130429
  Receipt Date: 20130429
  Transmission Date: 20140414
  Serious: Yes (Hospitalization, Other)
  Sender: FDA-Public Use
  Company Number: CA-UCBSA-084168

PATIENT
  Sex: 0

DRUGS (1)
  1. VIMPAT [Suspect]

REACTIONS (1)
  - Ventricular tachycardia [Recovered/Resolved]
